FAERS Safety Report 9629973 (Version 2)
Quarter: 2013Q4

REPORT INFORMATION
  Report Type: Spontaneous
  Country: US (occurrence: US)
  Receive Date: 20131017
  Receipt Date: 20131017
  Transmission Date: 20140711
  Serious: Yes (Other)
  Sender: FDA-Public Use
  Company Number: US-UCBSA-094804

PATIENT
  Sex: Female

DRUGS (8)
  1. VIMPAT [Suspect]
     Indication: CONVULSION
     Dosage: STRENGTH: 100 MG 2/DAILY
     Dates: start: 201308, end: 2013
  2. VIMPAT [Suspect]
     Indication: CONVULSION
     Dates: start: 2013
  3. PHENOBARBITOL [Concomitant]
     Indication: CONVULSION
  4. ENALAPRIL [Concomitant]
     Indication: BLOOD PRESSURE
  5. SYNTHROID [Concomitant]
  6. NORVASC [Concomitant]
  7. PLAVIX [Concomitant]
  8. SEROQUEL [Concomitant]
     Dosage: AT NIGHT

REACTIONS (2)
  - Convulsion [Not Recovered/Not Resolved]
  - Back disorder [Not Recovered/Not Resolved]
